FAERS Safety Report 16700396 (Version 2)
Quarter: 2019Q4

REPORT INFORMATION
  Report Type: Report from Study
  Country: None (occurrence: CA)
  Receive Date: 20190814
  Receipt Date: 20191104
  Transmission Date: 20200122
  Serious: Yes (Other)
  Sender: FDA-Public Use
  Company Number: CA-ABBVIE-19K-028-2885375-00

PATIENT
  Sex: Male
  Weight: 83.08 kg

DRUGS (1)
  1. HUMIRA [Suspect]
     Active Substance: ADALIMUMAB
     Indication: CROHN^S DISEASE
     Route: 058
     Dates: start: 20150709

REACTIONS (2)
  - Benign neoplasm [Not Recovered/Not Resolved]
  - Benign bone neoplasm [Not Recovered/Not Resolved]

NARRATIVE: CASE EVENT DATE: 2019
